FAERS Safety Report 9553949 (Version 1)
Quarter: 2013Q3

REPORT INFORMATION
  Report Type: Spontaneous
  Country: CH (occurrence: CH)
  Receive Date: 20130925
  Receipt Date: 20130925
  Transmission Date: 20140515
  Serious: Yes (Hospitalization)
  Sender: FDA-Public Use
  Company Number: CH-BAYER-2013-115563

PATIENT
  Age: 92 Year
  Sex: Female

DRUGS (5)
  1. ASPIRIN CARDIO [Suspect]
     Dosage: 100 MG, QD
     Route: 048
     Dates: end: 20130731
  2. LUMINAL [Concomitant]
     Dosage: 50 MG, QD
     Route: 048
  3. SIMVASTATIN [Concomitant]
     Dosage: 10 MG, QD
     Route: 048
     Dates: end: 20130731
  4. SURMONTIL [Concomitant]
     Dosage: 25 GTT, QD
     Route: 048
     Dates: end: 20130731
  5. MADOPAR [Concomitant]
     Dosage: 62.5 MG, TID (STRENGTH 100MG/25MG)
     Route: 048
     Dates: end: 20130731

REACTIONS (1)
  - Cerebral haemorrhage [Recovering/Resolving]
